FAERS Safety Report 13608246 (Version 5)
Quarter: 2017Q3

REPORT INFORMATION
  Report Type: Spontaneous
  Country: KR (occurrence: KR)
  Receive Date: 20170602
  Receipt Date: 20170828
  Transmission Date: 20171127
  Serious: No
  Sender: FDA-Public Use
  Company Number: KR-009507513-1705KOR015704

PATIENT
  Age: 57 Year
  Sex: Male
  Weight: 51.2 kg

DRUGS (35)
  1. FLUOROURACIL. [Concomitant]
     Active Substance: FLUOROURACIL
     Dosage: 1000 MG, QD (CYCLE 2); STRENGTH: 1000MG/20ML)
     Route: 042
     Dates: start: 20161214, end: 20161217
  2. DEXAMETHASONE SODIUM PHOSPHATE. [Concomitant]
     Active Substance: DEXAMETHASONE SODIUM PHOSPHATE
     Dosage: 8 MG, QD
     Route: 042
     Dates: start: 20161116, end: 20161118
  3. ALOXI [Concomitant]
     Active Substance: PALONOSETRON HYDROCHLORIDE
     Indication: PROPHYLAXIS OF NAUSEA AND VOMITING
     Dosage: 1 DF (VI), ONCE
     Route: 042
     Dates: start: 20161115, end: 20161115
  4. CEFTRIAXONE SODIUM. [Concomitant]
     Active Substance: CEFTRIAXONE SODIUM
     Indication: PULMONARY TUBERCULOSIS
     Dosage: 1 DF (VI), QD
     Route: 042
     Dates: start: 20161104, end: 20161115
  5. MANNITOL. [Concomitant]
     Active Substance: MANNITOL
     Dosage: 1 DF (BT), ONCE; STRENGTH ALSO REPORTED AS^100ML^
     Dates: start: 20161214, end: 20161214
  6. NEXIUM [Concomitant]
     Active Substance: ESOMEPRAZOLE MAGNESIUM
     Indication: OESOPHAGEAL CARCINOMA
     Dosage: 1 TABLET, QD
     Dates: start: 20161105, end: 20161109
  7. UNISTIN [Concomitant]
     Dosage: 90 MG, ONCE (CYCLE 2)
     Route: 042
     Dates: start: 20161214, end: 20161214
  8. LASIX [Concomitant]
     Active Substance: FUROSEMIDE
     Indication: FLUID REPLACEMENT
     Dosage: 1 DF (AM), ONCE
     Route: 042
     Dates: start: 20161115, end: 20161115
  9. MAGNESIN (MAGNESIUM SULFATE) [Concomitant]
     Dosage: 0.5 DF (AM), BID
     Route: 042
     Dates: start: 20161214, end: 20161214
  10. WINUF PERI [Concomitant]
     Dosage: 1 DF (BAG), QD; STRENGTH: 1450ML
     Route: 042
     Dates: start: 20161217, end: 20161222
  11. UNISTIN [Concomitant]
     Indication: OESOPHAGEAL CARCINOMA
     Dosage: 90 MG, ONCE (CYCLE 1)
     Route: 042
     Dates: start: 20161115, end: 20161115
  12. FLUOROURACIL. [Concomitant]
     Active Substance: FLUOROURACIL
     Indication: OESOPHAGEAL CARCINOMA
     Dosage: 1000 MG, QD (CYCLE 1); STRENGTH: 1000MG/20ML
     Route: 042
     Dates: start: 20161115, end: 20161118
  13. LASIX [Concomitant]
     Active Substance: FUROSEMIDE
     Dosage: 1 DF (AM),ONCE
     Route: 042
     Dates: start: 20161214, end: 20161214
  14. MUTERAN [Concomitant]
     Active Substance: ACETYLCYSTEINE
     Indication: PULMONARY TUBERCULOSIS
     Dosage: 2 DF (AM), BID; STRENGTH ALSO REPORTED AS ^6 ML^
     Route: 042
     Dates: start: 20161110, end: 20161110
  15. FLUOROURACIL. [Concomitant]
     Active Substance: FLUOROURACIL
     Dosage: 500 MG, QD (CYCLE 1); STRENGTH: 500MG/10ML
     Route: 042
     Dates: start: 20161115, end: 20161118
  16. FLUOROURACIL. [Concomitant]
     Active Substance: FLUOROURACIL
     Dosage: 5000 MG, QD (CYCLE 2); STRENGTH: 500MG/10ML)
     Route: 042
     Dates: start: 20161214, end: 20161217
  17. DEXAMETHASONE SODIUM PHOSPHATE. [Concomitant]
     Active Substance: DEXAMETHASONE SODIUM PHOSPHATE
     Dosage: 8 MG, QD
     Route: 042
     Dates: start: 20161215, end: 20161217
  18. POTASSIUM CHLORIDE. [Concomitant]
     Active Substance: POTASSIUM CHLORIDE
     Dosage: 0.5 DF (AM), BID
     Route: 042
     Dates: start: 20161214, end: 20161214
  19. ALOXI [Concomitant]
     Active Substance: PALONOSETRON HYDROCHLORIDE
     Dosage: 1 DF (VI), ONCE
     Route: 042
     Dates: start: 20161214, end: 20161214
  20. MAGNESIN (MAGNESIUM SULFATE) [Concomitant]
     Indication: FLUID REPLACEMENT
     Dosage: 0.5 DF (AM), ONCE
     Route: 042
     Dates: start: 20161115, end: 20161115
  21. MUTERAN [Concomitant]
     Active Substance: ACETYLCYSTEINE
     Dosage: 2 DF (AM), TID;  STRENGTH ALSO REPORTED AS ^6 ML^
     Route: 042
     Dates: start: 20161111, end: 20161111
  22. WINUF PERI [Concomitant]
     Indication: NUTRITIONAL SUPPLEMENTATION
     Dosage: 1 DF (BAG), QD; STRENGTH: 1085 ML
     Route: 042
     Dates: start: 20161110, end: 20161124
  23. EMEND (FOSAPREPITANT DIMEGLUMINE) [Suspect]
     Active Substance: FOSAPREPITANT DIMEGLUMINE
     Indication: PROPHYLAXIS OF NAUSEA AND VOMITING
     Dosage: 150 MG, ONCE
     Route: 042
     Dates: start: 20161115, end: 20161115
  24. POTASSIUM CHLORIDE. [Concomitant]
     Active Substance: POTASSIUM CHLORIDE
     Indication: PROPHYLAXIS
     Dosage: 0.5 DF (AM), ONCE
     Route: 042
     Dates: start: 20161115, end: 20161115
  25. THIAMINE. [Concomitant]
     Active Substance: THIAMINE
     Indication: NUTRITIONAL SUPPLEMENTATION
     Dosage: 2 DF (AM), TID
     Route: 042
     Dates: start: 20161104
  26. DEXAMETHASONE SODIUM PHOSPHATE. [Concomitant]
     Active Substance: DEXAMETHASONE SODIUM PHOSPHATE
     Indication: PROPHYLAXIS OF NAUSEA AND VOMITING
     Dosage: 12 MG, ONCE
     Route: 042
     Dates: start: 20161115, end: 20161115
  27. DEXAMETHASONE SODIUM PHOSPHATE. [Concomitant]
     Active Substance: DEXAMETHASONE SODIUM PHOSPHATE
     Dosage: 12 MG, ONCE
     Route: 042
     Dates: start: 20161214, end: 20161214
  28. CALCIUM CARBONATE (+) SODIUM ALGINATE (+) SODIUM BICARBONATE [Concomitant]
     Indication: PROPHYLAXIS AGAINST GASTROINTESTINAL ULCER
     Dosage: 1 DF (PK), TID
     Route: 048
     Dates: start: 20161105, end: 20161109
  29. LAMINA G [Concomitant]
     Active Substance: SODIUM ALGINATE
     Indication: PROPHYLAXIS
     Dosage: 1 DF (PK), TID
     Route: 048
     Dates: start: 20161105, end: 20161109
  30. MULTIVITA [Concomitant]
     Indication: NUTRITIONAL SUPPLEMENTATION
     Dosage: 1 DF (VI), QD
     Route: 042
     Dates: start: 20161105, end: 20161109
  31. PENIRAMIN [Concomitant]
     Indication: URTICARIA
     Dosage: 1 DF (AM), QD
     Route: 042
     Dates: start: 20161110, end: 20161110
  32. EMEND (FOSAPREPITANT DIMEGLUMINE) [Suspect]
     Active Substance: FOSAPREPITANT DIMEGLUMINE
     Dosage: 150 MG, ONCE
     Route: 042
     Dates: start: 20161214, end: 20161214
  33. MUTERAN [Concomitant]
     Active Substance: ACETYLCYSTEINE
     Dosage: 2 DF (AM), ONCE; STRENGTH ALSO REPORTED AS ^6 ML^
     Route: 042
     Dates: start: 20161112, end: 20161112
  34. MANNITOL. [Concomitant]
     Active Substance: MANNITOL
     Indication: FLUID REPLACEMENT
     Dosage: 1 DF (BT), ONCE; STRENGTH ALSO REPORTED AS^100ML^
     Route: 042
     Dates: start: 20161115, end: 20161115
  35. WINUF PERI [Concomitant]
     Dosage: 1 DF (BAG), QD; STRENGTH: 1450ML
     Route: 042
     Dates: start: 20161105, end: 20161107

REACTIONS (3)
  - Constipation [Recovered/Resolved]
  - Nausea [Recovered/Resolved]
  - Decreased appetite [Recovered/Resolved]

NARRATIVE: CASE EVENT DATE: 20161119
